FAERS Safety Report 9140881 (Version 4)
Quarter: 2013Q2

REPORT INFORMATION
  Report Type: Report from Study
  Country: US (occurrence: US)
  Receive Date: 20130305
  Receipt Date: 20130509
  Transmission Date: 20140414
  Serious: Yes (Hospitalization)
  Sender: FDA-Public Use
  Company Number: US-ACTELION-A-NJ2013-80282

PATIENT
  Age: 88 Year
  Sex: Female

DRUGS (2)
  1. VENTAVIS [Suspect]
     Indication: PULMONARY ARTERIAL HYPERTENSION
     Dosage: 5 MCG, 6-9 X DAILY
     Route: 055
  2. COUMADIN [Concomitant]

REACTIONS (8)
  - Sinus arrest [Recovering/Resolving]
  - Subarachnoid haemorrhage [Recovering/Resolving]
  - Loss of consciousness [Not Recovered/Not Resolved]
  - Fall [Recovering/Resolving]
  - Head injury [Recovering/Resolving]
  - Cystitis [Recovering/Resolving]
  - Blood sodium decreased [Not Recovered/Not Resolved]
  - Pneumonia [Not Recovered/Not Resolved]
